FAERS Safety Report 9466271 (Version 1)
Quarter: 2013Q3

REPORT INFORMATION
  Report Type: Spontaneous
  Country: US (occurrence: US)
  Receive Date: 20130820
  Receipt Date: 20130820
  Transmission Date: 20140515
  Serious: Yes (Death)
  Sender: FDA-Public Use
  Company Number: US-PFIZER INC-2013237775

PATIENT
  Age: 61 Year
  Sex: Male

DRUGS (1)
  1. CAMPTOSAR [Suspect]
     Indication: RECTAL CANCER
     Dosage: 329 MG EVERY 14 DAYS

REACTIONS (2)
  - Disease progression [Fatal]
  - Rectal cancer [Fatal]
